FAERS Safety Report 21948402 (Version 1)
Quarter: 2023Q1

REPORT INFORMATION
  Report Type: Report from Study
  Country: US (occurrence: US)
  Receive Date: 20230203
  Receipt Date: 20230203
  Transmission Date: 20230418
  Serious: Yes (Death, Hospitalization)
  Sender: FDA-Public Use
  Company Number: US-ABBVIE-4292780

PATIENT
  Sex: Male

DRUGS (3)
  1. CREON [Suspect]
     Active Substance: PANCRELIPASE AMYLASE\PANCRELIPASE LIPASE\PANCRELIPASE PROTEASE
     Indication: Pancreatic carcinoma stage IV
     Dosage: TIME INTERVAL: 0.33333333 DAYS: DRUG START: SEP OR OCT 2022
     Route: 048
     Dates: start: 2022, end: 202301
  2. MIRANOL [Concomitant]
     Indication: Decreased appetite
  3. ELIQUIS [Concomitant]
     Active Substance: APIXABAN
     Indication: Anticoagulant therapy

REACTIONS (1)
  - Pancreatic carcinoma stage IV [Fatal]
